FAERS Safety Report 19024436 (Version 1)
Quarter: 2021Q1

REPORT INFORMATION
  Report Type: Spontaneous
  Country: FR (occurrence: FR)
  Receive Date: 20210317
  Receipt Date: 20210317
  Transmission Date: 20210420
  Serious: Yes (Hospitalization, Other)
  Sender: FDA-Public Use
  Company Number: FR-BRISTOL-MYERS SQUIBB COMPANY-BMS-2021-023965

PATIENT
  Age: 45 Year
  Sex: Female
  Weight: 130 kg

DRUGS (2)
  1. COUMADINE [Suspect]
     Active Substance: WARFARIN SODIUM
     Indication: PROPHYLAXIS
     Dosage: 5 MILLIGRAM
     Route: 048
     Dates: start: 20201101, end: 20210217
  2. KENACORT [Suspect]
     Active Substance: TRIAMCINOLONE
     Indication: PAIN
     Dosage: 80 MILLIGRAM
     Route: 014
     Dates: start: 20201224, end: 20201224

REACTIONS (2)
  - Pulmonary embolism [Recovering/Resolving]
  - International normalised ratio abnormal [Recovered/Resolved]

NARRATIVE: CASE EVENT DATE: 202101
